FAERS Safety Report 4676551-1 (Version None)
Quarter: 2005Q2

REPORT INFORMATION
  Report Type: 
  Country: None (occurrence: None)
  Receive Date: 20050526
  Receipt Date: 20050328
  Transmission Date: 20051028
  Serious: Yes (Hospitalization)
  Sender: FDA-Public Use
  Company Number: 2005S1001719

PATIENT
  Age: 77 Year
  Sex: Male
  Weight: 72.5755 kg

DRUGS (4)
  1. ATENOLOL [Suspect]
     Indication: HYPERTENSION
     Dosage: 50 MG; QD; PO
     Route: 048
     Dates: start: 20050215, end: 20050331
  2. TRIAMTERENE AND HYDROCHLOROTHIAZIDE [Concomitant]
  3. ATORVASTATIN [Concomitant]
  4. CLOPIDOGREL BISULFATE [Concomitant]

REACTIONS (3)
  - DIPLOPIA [None]
  - MYASTHENIA GRAVIS [None]
  - VITH NERVE DISORDER [None]
